FAERS Safety Report 7145776-8 (Version None)
Quarter: 2010Q4

REPORT INFORMATION
  Report Type: 
  Country: None (occurrence: None)
  Receive Date: 20101208
  Receipt Date: 20101124
  Transmission Date: 20110411
  Serious: Yes (Hospitalization, Congenital Anomaly)
  Sender: FDA-Public Use
  Company Number: A0847422A

PATIENT
  Sex: Male
  Weight: 2.3 kg

DRUGS (1)
  1. PAROXETINE HYDROCHLORIDE [Suspect]

REACTIONS (8)
  - ANKYLOGLOSSIA CONGENITAL [None]
  - ATRIAL SEPTAL DEFECT [None]
  - DRUG EXPOSURE DURING PREGNANCY [None]
  - FAILURE TO THRIVE [None]
  - GASTROOESOPHAGEAL REFLUX DISEASE [None]
  - PYLORIC STENOSIS [None]
  - SPINAL FUSION SURGERY [None]
  - VENTRICULAR SEPTAL DEFECT [None]
